FAERS Safety Report 4806746-5 (Version None)
Quarter: 2005Q4

REPORT INFORMATION
  Report Type: 
  Country: None (occurrence: None)
  Receive Date: 20051019
  Receipt Date: 20050928
  Transmission Date: 20060501
  Serious: Yes (Life-Threatening)
  Sender: FDA-Public Use
  Company Number: EWC051046091

PATIENT
  Sex: Female

DRUGS (3)
  1. OLANZAPINE [Suspect]
  2. ZUCLOPENTHIXOL [Concomitant]
  3. LITHIUM [Concomitant]

REACTIONS (1)
  - PULMONARY EMBOLISM [None]
